FAERS Safety Report 9964634 (Version 2)
Quarter: 2014Q2

REPORT INFORMATION
  Report Type: Spontaneous
  Country: GB (occurrence: GB)
  Receive Date: 20140305
  Receipt Date: 20140501
  Transmission Date: 20141212
  Serious: Yes (Other)
  Sender: FDA-Public Use
  Company Number: GB-TEVA-464584ISR

PATIENT
  Age: 44 Year
  Sex: Female

DRUGS (6)
  1. HYDROCORTISONE [Suspect]
     Indication: ADDISON^S DISEASE
     Dosage: 20 MILLIGRAM DAILY; 1 DF-10MG; 15 MG IN THE MORNING, 5 MG AT NIGHT
     Dates: start: 199804
  2. DHEA [Concomitant]
     Dosage: 25 MILLIGRAM DAILY; AT NIGHT
  3. FLUDROCORTISONE [Concomitant]
     Dosage: IN THE MORNING
  4. L-THYROXINE [Concomitant]
     Dosage: 25 MILLIGRAM DAILY;
  5. L-THYROXINE [Concomitant]
     Dosage: 37.5 MILLIGRAM DAILY;
  6. TIBOLONE [Concomitant]

REACTIONS (5)
  - Off label use [Unknown]
  - Irritability [Unknown]
  - Feeling abnormal [Unknown]
  - Fatigue [Unknown]
  - Drug ineffective [Unknown]
